FAERS Safety Report 14829222 (Version 1)
Quarter: 2018Q2

REPORT INFORMATION
  Report Type: Spontaneous
  Country: AU (occurrence: AU)
  Receive Date: 20180407
  Receipt Date: 20180407
  Transmission Date: 20180711
  Serious: No
  Sender: FDA-Public Use
  Company Number: None

PATIENT
  Age: 39 Year
  Sex: Female
  Weight: 67.5 kg

DRUGS (4)
  1. TEVA-TAMOXIFEN (TAMOXIFEN CITRATE) [Suspect]
     Active Substance: TAMOXIFEN CITRATE
     Indication: BREAST CANCER
     Dosage: ?          QUANTITY:1 TABLET(S);?
     Route: 048
     Dates: start: 20150115
  2. ADERALL [Concomitant]
  3. LEVITHYROXINE [Concomitant]
  4. ADVIL [Concomitant]
     Active Substance: IBUPROFEN

REACTIONS (10)
  - Dizziness postural [None]
  - Muscle spasms [None]
  - Loose tooth [None]
  - Dysgeusia [None]
  - Tooth fracture [None]
  - Eating disorder [None]
  - Joint lock [None]
  - Tooth disorder [None]
  - Hypoaesthesia [None]
  - Fear of disease [None]
